FAERS Safety Report 15820449 (Version 3)
Quarter: 2019Q1

REPORT INFORMATION
  Report Type: Report from Study
  Country: CA (occurrence: CA)
  Receive Date: 20190114
  Receipt Date: 20190206
  Transmission Date: 20190417
  Serious: Yes (Other)
  Sender: FDA-Public Use
  Company Number: CA-JNJFOC-20190112725

PATIENT
  Sex: Female
  Weight: 75.3 kg

DRUGS (1)
  1. STELARA [Suspect]
     Active Substance: USTEKINUMAB
     Indication: CROHN^S DISEASE
     Route: 042

REACTIONS (5)
  - Abdominal pain [Unknown]
  - Lung infection [Unknown]
  - Influenza [Unknown]
  - Drug ineffective [Unknown]
  - Diarrhoea [Unknown]
